FAERS Safety Report 6025281-2 (Version None)
Quarter: 2008Q4

REPORT INFORMATION
  Report Type: 
  Country: None (occurrence: None)
  Receive Date: 20081231
  Receipt Date: 20081222
  Transmission Date: 20090506
  Serious: Yes (Other)
  Sender: FDA-Public Use
  Company Number: PHHY2008BR32835

PATIENT
  Age: 60 Year
  Sex: Female
  Weight: 67 kg

DRUGS (3)
  1. ACLASTA [Suspect]
     Indication: OSTEOPOROSIS
     Dosage: 5MG/100ML
     Route: 042
     Dates: start: 20081209
  2. ACLASTA [Suspect]
     Indication: BONE DISORDER
  3. ACLASTA [Suspect]
     Indication: OSTEOPENIA

REACTIONS (8)
  - BLISTER [None]
  - EYE IRRITATION [None]
  - EYE SWELLING [None]
  - FATIGUE [None]
  - LACRIMATION INCREASED [None]
  - OCULAR HYPERAEMIA [None]
  - SOMNOLENCE [None]
  - WOUND DRAINAGE [None]
